FAERS Safety Report 18441773 (Version 2)
Quarter: 2020Q4

REPORT INFORMATION
  Report Type: Spontaneous
  Country: NL (occurrence: NL)
  Receive Date: 20201029
  Receipt Date: 20201125
  Transmission Date: 20210114
  Serious: Yes (Life-Threatening)
  Sender: FDA-Public Use
  Company Number: NL-TEVA-2020-NL-1841938

PATIENT
  Age: 87 Year
  Sex: Female
  Weight: 58 kg

DRUGS (2)
  1. PANTOPRAZOL TABLET MSR 20MG / BRAND NAME NOT SPECIFIED [Suspect]
     Active Substance: PANTOPRAZOLE
     Indication: PRODUCT USED FOR UNKNOWN INDICATION
     Dosage: 1 DOSAGE FORMS DAILY;
     Dates: start: 2008, end: 20201004
  2. LANSOPRAZOL CAPSULE MSR 30MG / BRAND NAME NOT SPECIFIED [Concomitant]
     Dosage: 30 MG (MILLIGRAMS),THERAPY START DATE AND END DATE: ASKED BUT UNKNOWN

REACTIONS (2)
  - Haemoglobin decreased [Recovering/Resolving]
  - Hyponatraemia [Recovering/Resolving]

NARRATIVE: CASE EVENT DATE: 20200910
